FAERS Safety Report 5012031-1 (Version None)
Quarter: 2006Q2

REPORT INFORMATION
  Report Type: 
  Country: None (occurrence: None)
  Receive Date: 20060526
  Receipt Date: 20060502
  Transmission Date: 20061013
  Serious: Yes (Other)
  Sender: FDA-Public Use
  Company Number: US-GLAXOSMITHKLINE-A0604079A

PATIENT
  Age: 32 Year
  Sex: Female
  Weight: 52.7 kg

DRUGS (2)
  1. VALTREX [Suspect]
     Dosage: 2G TWICE PER DAY
     Route: 048
     Dates: start: 20060501, end: 20060501
  2. NO CONCURRENT MEDICATION [Concomitant]

REACTIONS (5)
  - ERYTHEMA [None]
  - FEELING HOT [None]
  - HYPERSENSITIVITY [None]
  - SWELLING FACE [None]
  - URTICARIA [None]
